FAERS Safety Report 10095469 (Version 1)
Quarter: 2014Q2

REPORT INFORMATION
  Report Type: Spontaneous
  Country: US (occurrence: None)
  Receive Date: 20140418
  Receipt Date: 20140418
  Transmission Date: 20141212
  Serious: Yes (Hospitalization)
  Sender: FDA-Public Use
  Company Number: IPC201404-000167

PATIENT
  Age: 35 Year
  Sex: Male

DRUGS (3)
  1. METOPROLOL TARTRATE [Suspect]
     Indication: HYPERTENSION
     Dosage: 47 (25 MG TABLETS)
  2. AMLODIPINE BESILATE [Suspect]
     Indication: HYPERTENSION
     Dosage: 30 (5 MG TABLETS)
  3. VERAPAMIL [Suspect]
     Indication: HYPERTENSION
     Dosage: 57 (180 MG TABLETS)

REACTIONS (7)
  - Cardiogenic shock [None]
  - Intentional overdose [None]
  - Suicide attempt [None]
  - Renal failure acute [None]
  - Hyperkalaemia [None]
  - Lactic acidosis [None]
  - Hypoglycaemia [None]
